FAERS Safety Report 17342569 (Version 1)
Quarter: 2020Q1

REPORT INFORMATION
  Report Type: Spontaneous
  Country: US (occurrence: US)
  Receive Date: 20200129
  Receipt Date: 20200129
  Transmission Date: 20200409
  Serious: No
  Sender: FDA-Public Use
  Company Number: US-ALLERGAN-1926500US

PATIENT
  Age: 46 Year
  Sex: Female

DRUGS (9)
  1. BOTOX COSMETIC [Suspect]
     Active Substance: ONABOTULINUMTOXINA
     Indication: SKIN WRINKLING
     Dosage: 10 UNITS, SINGLE
     Dates: start: 20190517, end: 20190517
  2. BOTOX COSMETIC [Suspect]
     Active Substance: ONABOTULINUMTOXINA
     Dosage: UNK UNK, SINGLE
     Dates: start: 20181117, end: 20181117
  3. LEVOXYL [Concomitant]
     Active Substance: LEVOTHYROXINE SODIUM
     Indication: HYPOTHYROIDISM
  4. BOTOX COSMETIC [Suspect]
     Active Substance: ONABOTULINUMTOXINA
     Indication: SKIN WRINKLING
     Dosage: 10 UNK, SINGLE
     Dates: start: 20190517, end: 20190517
  5. BOTOX COSMETIC [Suspect]
     Active Substance: ONABOTULINUMTOXINA
     Dosage: 37 UNITS, SINGLE
     Dates: start: 20190209, end: 20190209
  6. BOTOX COSMETIC [Suspect]
     Active Substance: ONABOTULINUMTOXINA
     Dosage: 10 UNITS, SINGLE
     Dates: start: 20190315, end: 20190315
  7. MULTIVITAMIN [Concomitant]
     Active Substance: VITAMINS
  8. BOTOX COSMETIC [Suspect]
     Active Substance: ONABOTULINUMTOXINA
     Indication: SKIN WRINKLING
     Dosage: 30 UNK, SINGLE
     Dates: start: 20190517, end: 20190517
  9. BOTOX COSMETIC [Suspect]
     Active Substance: ONABOTULINUMTOXINA
     Indication: SKIN WRINKLING
     Dosage: 5 UNITS, SINGLE
     Dates: start: 20190315, end: 20190315

REACTIONS (3)
  - Drug ineffective [Unknown]
  - Product preparation error [Unknown]
  - Off label use [Unknown]

NARRATIVE: CASE EVENT DATE: 20181117
